FAERS Safety Report 9746389 (Version 1)
Quarter: 2013Q4

REPORT INFORMATION
  Report Type: Report from Study
  Country: US (occurrence: US)
  Receive Date: 20131211
  Receipt Date: 20131211
  Transmission Date: 20140711
  Serious: Yes (Hospitalization)
  Sender: FDA-Public Use
  Company Number: US-GLAXOSMITHKLINE-A1052943A

PATIENT
  Age: 67 Year
  Sex: Male
  Weight: 65.7 kg

DRUGS (8)
  1. LAPATINIB [Suspect]
     Indication: SQUAMOUS CELL CARCINOMA OF HEAD AND NECK
     Dosage: 1000MG PER DAY
     Route: 048
     Dates: start: 20131028, end: 20131130
  2. CARBOPLATIN [Suspect]
     Indication: SQUAMOUS CELL CARCINOMA OF HEAD AND NECK
     Route: 042
  3. PACLITAXEL [Suspect]
     Indication: SQUAMOUS CELL CARCINOMA OF HEAD AND NECK
     Route: 042
  4. MARIJUANA [Suspect]
  5. ATIVAN [Concomitant]
     Indication: NAUSEA
     Dosage: .5MG PER DAY
     Route: 048
  6. GABAPENTIN [Concomitant]
     Indication: NEURALGIA
     Dosage: 100MG THREE TIMES PER DAY
     Route: 048
  7. IMODIUM [Concomitant]
     Indication: DIARRHOEA
     Dosage: 2MG AS DIRECTED
  8. ZOFRAN [Concomitant]
     Indication: NAUSEA
     Dosage: 8MG THREE TIMES PER DAY

REACTIONS (2)
  - Mental status changes [Unknown]
  - Diarrhoea [Recovering/Resolving]
